FAERS Safety Report 5424321-9 (Version None)
Quarter: 2007Q3

REPORT INFORMATION
  Report Type: 
  Country: None (occurrence: None)
  Receive Date: 20070823
  Receipt Date: 20070812
  Transmission Date: 20080115
  Serious: Yes (Other)
  Sender: FDA-Public Use
  Company Number: US-PFIZER INC-2007068132

PATIENT
  Sex: Male
  Weight: 90.7 kg

DRUGS (7)
  1. CHANTIX [Suspect]
     Indication: SMOKING CESSATION THERAPY
  2. SEROQUEL [Concomitant]
  3. PHENOBARBITAL TAB [Concomitant]
  4. XANAX [Concomitant]
  5. NEURONTIN [Concomitant]
  6. LAMICTAL [Concomitant]
  7. ADDERALL 10 [Concomitant]

REACTIONS (4)
  - ABNORMAL DREAMS [None]
  - FATIGUE [None]
  - INSOMNIA [None]
  - MANIA [None]
